FAERS Safety Report 14894004 (Version 8)
Quarter: 2018Q3

REPORT INFORMATION
  Report Type: Report from Study
  Country: US (occurrence: US)
  Receive Date: 20180514
  Receipt Date: 20180920
  Transmission Date: 20181010
  Serious: Yes (Death, Hospitalization, Disabling, Other)
  Sender: FDA-Public Use
  Company Number: US-EXELIXIS-XL18418013968

PATIENT
  Age: 66 Year
  Sex: Female
  Weight: 75.1 kg

DRUGS (28)
  1. ATEZOLIZUMAB. [Suspect]
     Active Substance: ATEZOLIZUMAB
     Indication: TRANSITIONAL CELL CARCINOMA
     Dosage: 1200 MG, Q3WEEKS
     Route: 042
     Dates: start: 20180427, end: 20180427
  2. LIDOCAINE. [Concomitant]
     Active Substance: LIDOCAINE
  3. FIRST BXN MOUTHWASH [Concomitant]
     Active Substance: DIPHENHYDRAMINE HYDROCHLORIDE\LIDOCAINE HYDROCHLORIDE\NYSTATIN
  4. DILAUDID [Concomitant]
     Active Substance: HYDROMORPHONE HYDROCHLORIDE
  5. DESYREL [Concomitant]
     Active Substance: TRAZODONE HYDROCHLORIDE
  6. XL184 [Suspect]
     Active Substance: CABOZANTINIB
     Indication: TRANSITIONAL CELL CARCINOMA
     Dosage: 40 MG, QD
     Route: 048
     Dates: start: 20180427, end: 20180506
  7. BUPROPION SR [Concomitant]
     Active Substance: BUPROPION HYDROCHLORIDE
  8. SENNA S [Concomitant]
     Active Substance: DOCUSATE SODIUM\SENNA LEAF
  9. ^GI COCKTAIL SUSPENSION^ [Concomitant]
  10. SODIUM CHLORIDE. [Concomitant]
     Active Substance: SODIUM CHLORIDE
  11. DURAGESIC [Concomitant]
     Active Substance: FENTANYL
  12. MULTIHANCE [Concomitant]
     Active Substance: GADOBENATE DIMEGLUMINE
  13. HEPARIN LOCK FLUSH [Concomitant]
     Active Substance: HEPARIN SODIUM
  14. EMLA [Concomitant]
     Active Substance: LIDOCAINE\PRILOCAINE
  15. ATIVAN [Concomitant]
     Active Substance: LORAZEPAM
  16. MELATONIN [Concomitant]
     Active Substance: MELATONIN
  17. ACETAMINOPHEN. [Concomitant]
     Active Substance: ACETAMINOPHEN
  18. BISACODYL. [Concomitant]
     Active Substance: BISACODYL
  19. COMPAZINE [Concomitant]
     Active Substance: PROCHLORPERAZINE MALEATE
  20. TRIAZOLAM. [Concomitant]
     Active Substance: TRIAZOLAM
  21. VANCOCIN [Concomitant]
     Active Substance: VANCOMYCIN HYDROCHLORIDE
  22. DOCULAX [Concomitant]
  23. CEFTRIAXONE. [Concomitant]
     Active Substance: CEFTRIAXONE
  24. MAGNESIUM HYDROXIDE. [Concomitant]
     Active Substance: MAGNESIUM HYDROXIDE
  25. ZOSYN [Concomitant]
     Active Substance: PIPERACILLIN SODIUM\TAZOBACTAM SODIUM
  26. MIRALAX [Concomitant]
     Active Substance: POLYETHYLENE GLYCOL 3350
  27. AMOXICILLIN AND CLAVULANATE POTASSIU. [Concomitant]
  28. LOVENOX [Concomitant]
     Active Substance: ENOXAPARIN SODIUM

REACTIONS (3)
  - Ischaemic stroke [Recovered/Resolved with Sequelae]
  - Transitional cell carcinoma [Fatal]
  - Urinary tract infection [Recovered/Resolved]

NARRATIVE: CASE EVENT DATE: 20180506
